FAERS Safety Report 7406657-5 (Version None)
Quarter: 2011Q2

REPORT INFORMATION
  Report Type: 
  Country: None (occurrence: None)
  Receive Date: 20110406
  Receipt Date: 20110406
  Transmission Date: 20111010
  Serious: Yes (Other)
  Sender: FDA-Public Use
  Company Number: None

PATIENT
  Sex: Male

DRUGS (1)
  1. BUPROPION XL 150MG [Suspect]
     Indication: ANXIETY
     Dosage: 150MG 3 TABS DAILY BY MOUTH
     Route: 048
     Dates: start: 20060101, end: 20070101

REACTIONS (1)
  - RASH [None]
